FAERS Safety Report 14000378 (Version 2)
Quarter: 2017Q4

REPORT INFORMATION
  Report Type: Spontaneous
  Country: US (occurrence: US)
  Receive Date: 20170922
  Receipt Date: 20171027
  Transmission Date: 20180321
  Serious: Yes (Other)
  Sender: FDA-Public Use
  Company Number: US-ASTELLAS-2017US037677

PATIENT
  Sex: Male

DRUGS (6)
  1. MYRBETRIQ [Suspect]
     Active Substance: MIRABEGRON
     Indication: NEPHROLITHIASIS
  2. MYRBETRIQ [Suspect]
     Active Substance: MIRABEGRON
     Indication: URINARY INCONTINENCE
     Route: 048
     Dates: start: 201611
  3. MYRBETRIQ [Suspect]
     Active Substance: MIRABEGRON
     Indication: NEPHROLITHIASIS
  4. MYRBETRIQ [Suspect]
     Active Substance: MIRABEGRON
     Indication: URINE ANALYSIS ABNORMAL
  5. MYRBETRIQ [Suspect]
     Active Substance: MIRABEGRON
     Indication: URETEROLITHIASIS
  6. ALLOPURINOL. [Concomitant]
     Active Substance: ALLOPURINOL
     Indication: PRODUCT USED FOR UNKNOWN INDICATION
     Dosage: UNK UNK, UNKNOWN FREQ.
     Route: 065

REACTIONS (10)
  - Nocturia [Unknown]
  - Haematuria [Unknown]
  - Urinary tract infection [Unknown]
  - Intentional product misuse [Unknown]
  - Off label use [Unknown]
  - Urinary incontinence [Unknown]
  - Blood urine present [Unknown]
  - Micturition urgency [Unknown]
  - Flank pain [Unknown]
  - Dysuria [Unknown]
